FAERS Safety Report 5477221-2 (Version None)
Quarter: 2007Q4

REPORT INFORMATION
  Report Type: 
  Country: None (occurrence: None)
  Receive Date: 20071004
  Receipt Date: 20071002
  Transmission Date: 20080405
  Serious: Yes (Hospitalization)
  Sender: FDA-Public Use
  Company Number: D0054732A

PATIENT
  Age: 38 Year
  Sex: Male

DRUGS (2)
  1. ARIXTRA [Suspect]
     Indication: THROMBOSIS PROPHYLAXIS
     Route: 065
     Dates: end: 20070401
  2. VOLTAREN [Concomitant]
     Route: 061
     Dates: start: 20070101

REACTIONS (2)
  - HAEMATURIA [None]
  - HEPATIC ENZYME INCREASED [None]
